FAERS Safety Report 19329567 (Version 2)
Quarter: 2021Q3

REPORT INFORMATION
  Report Type: Report from Study
  Country: CA (occurrence: CA)
  Receive Date: 20210528
  Receipt Date: 20210803
  Transmission Date: 20211014
  Serious: Yes (Other)
  Sender: FDA-Public Use
  Company Number: NVSC2021CA115470

PATIENT
  Sex: Female

DRUGS (1)
  1. MAYZENT [Suspect]
     Active Substance: SIPONIMOD
     Indication: SECONDARY PROGRESSIVE MULTIPLE SCLEROSIS
     Dosage: UNK
     Route: 048
     Dates: start: 20210127

REACTIONS (5)
  - Back pain [Unknown]
  - Presbyopia [Unknown]
  - Hepatic enzyme increased [Unknown]
  - Ophthalmoplegia [Unknown]
  - Hypermetropia [Unknown]
